FAERS Safety Report 17608495 (Version 1)
Quarter: 2020Q2

REPORT INFORMATION
  Report Type: Report from Study
  Country: FR (occurrence: FR)
  Receive Date: 20200401
  Receipt Date: 20200401
  Transmission Date: 20200713
  Serious: Yes (Hospitalization)
  Sender: FDA-Public Use
  Company Number: FR-EMD SERONO-9116955

PATIENT
  Age: 51 Year
  Sex: Female
  Weight: 46 kg

DRUGS (7)
  1. AERIUS (DESLORATADINE) [Concomitant]
     Active Substance: DESLORATADINE
     Indication: RHINITIS PROPHYLAXIS
  2. DOLIPRANE [Concomitant]
     Active Substance: ACETAMINOPHEN
     Indication: PAIN
  3. AVELUMAB [Suspect]
     Active Substance: AVELUMAB
     Indication: SOFT TISSUE SARCOMA
     Route: 042
     Dates: start: 20190729, end: 20190909
  4. REGORAFENIB. [Suspect]
     Active Substance: REGORAFENIB
     Indication: SOFT TISSUE SARCOMA
     Route: 048
     Dates: start: 20190701, end: 20190910
  5. IZALGI [Concomitant]
     Active Substance: ACETAMINOPHEN\OPIUM
     Indication: PAIN
  6. REGORAFENIB. [Suspect]
     Active Substance: REGORAFENIB
     Indication: COLORECTAL CANCER
  7. LANSOPRAZOLE. [Concomitant]
     Active Substance: LANSOPRAZOLE
     Indication: EPIGASTRIC DISCOMFORT

REACTIONS (1)
  - Autoimmune myocarditis [Recovered/Resolved]

NARRATIVE: CASE EVENT DATE: 20190911
